FAERS Safety Report 12072679 (Version 1)
Quarter: 2016Q1

REPORT INFORMATION
  Report Type: Spontaneous
  Country: US (occurrence: US)
  Receive Date: 20160212
  Receipt Date: 20160212
  Transmission Date: 20160526
  Serious: Yes (Other)
  Sender: FDA-Public Use
  Company Number: US-TEVA-608617USA

PATIENT
  Age: 18 Year
  Sex: Female

DRUGS (3)
  1. ABILIFY [Suspect]
     Active Substance: ARIPIPRAZOLE
     Indication: BIPOLAR DISORDER
     Dosage: 5 MG DAILY IN THE MORMNG AND 2 MG DAILY IN THE AFTERNOON
     Dates: start: 2009
  2. FLUOXETINE [Concomitant]
     Active Substance: FLUOXETINE HYDROCHLORIDE
  3. ARIPIPRAZOLE. [Suspect]
     Active Substance: ARIPIPRAZOLE
     Indication: BIPOLAR DISORDER
     Dosage: 5 MG DA1LY IN THE MORNING AND 2 MG DAILY IN THE AFTERNOON
     Route: 048
     Dates: start: 20150906, end: 20150906

REACTIONS (7)
  - Increased appetite [Unknown]
  - Rash [Unknown]
  - Agitation [Unknown]
  - Suicidal ideation [Unknown]
  - Inappropriate schedule of drug administration [Unknown]
  - Frustration tolerance decreased [Unknown]
  - Drug ineffective [Unknown]
